FAERS Safety Report 16719426 (Version 1)
Quarter: 2019Q3

REPORT INFORMATION
  Report Type: Spontaneous
  Country: AT (occurrence: AT)
  Receive Date: 20190820
  Receipt Date: 20190820
  Transmission Date: 20191005
  Serious: Yes (Hospitalization)
  Sender: FDA-Public Use
  Company Number: AT-TEVA-2019-AT-1049085

PATIENT
  Age: 72 Year
  Sex: Male
  Weight: 76 kg

DRUGS (59)
  1. TRITTICO [Concomitant]
     Active Substance: TRAZODONE HYDROCHLORIDE
  2. COENZYM Q10 [Concomitant]
  3. MEXALEN 500 [Concomitant]
  4. NAPROXEN 500MG [Concomitant]
     Active Substance: NAPROXEN
     Dosage: 1000 MILLIGRAM DAILY; 500MG, 1-0-1 FOR 5 DAYS
  5. POLSTIMOL [Concomitant]
  6. ADVANTAN [Concomitant]
     Active Substance: METHYLPREDNISOLONE ACEPONATE
  7. AMPHO-MORONAL TABLETTEN [Concomitant]
  8. HALCION [Concomitant]
     Active Substance: TRIAZOLAM
  9. MARCUMAR [Concomitant]
     Active Substance: PHENPROCOUMON
  10. RENITEC [Concomitant]
  11. SEROQUEL [Concomitant]
     Active Substance: QUETIAPINE FUMARATE
  12. OMEGA 3 [Concomitant]
     Active Substance: OMEGA-3 FATTY ACIDS
  13. MAGNESIUM [Concomitant]
     Active Substance: MAGNESIUM
  14. APREDNISOLON [Concomitant]
     Active Substance: PREDNISOLONE
     Route: 048
     Dates: start: 20180427, end: 20180430
  15. AUGMENTIN [Concomitant]
     Active Substance: AMOXICILLIN\CLAVULANATE POTASSIUM
  16. PSYCHO PAX [Concomitant]
  17. SEROXAT [Concomitant]
     Active Substance: PAROXETINE HYDROCHLORIDE
  18. UROMONT [Concomitant]
  19. KAMILLOSAN [Concomitant]
  20. CRESTON 20 MG [Concomitant]
     Indication: CEREBRAL INFARCTION
     Dosage: 20 MILLIGRAM DAILY; 10-20 MG; 10MG 0-0-1-0, 20 MG, 0-1-0-0 (06-MAR-2017)
     Route: 048
     Dates: start: 20141101, end: 20181006
  21. ARTERGIN [Concomitant]
  22. HADENSA [Concomitant]
  23. VIBRAMYCIN 200MG [Concomitant]
     Dosage: 400 MILLIGRAM DAILY; 200MG 2X1 FOR 5 DAYS
     Dates: start: 20170619
  24. XANOR [Concomitant]
     Active Substance: ALPRAZOLAM
  25. OLEO-VIT-TROPFEN [Concomitant]
  26. LIDOCAIN [Concomitant]
     Active Substance: LIDOCAINE
  27. NEUROBION [Concomitant]
     Active Substance: CYANOCOBALAMIN\PYRIDOXINE\THIAMINE
  28. REPARIL GEL [Concomitant]
  29. SCHERIPROCT [Concomitant]
     Active Substance: DIBUCAINE HYDROCHLORIDE\PREDNISOLONE
  30. DOLPASSE [Concomitant]
  31. FOLSAN 5MG [Concomitant]
  32. NOVALGIN [Concomitant]
  33. XYLOCAIN 2% + 5% [Concomitant]
  34. CYMBALTA [Concomitant]
     Active Substance: DULOXETINE HYDROCHLORIDE
  35. LYRICA [Concomitant]
     Active Substance: PREGABALIN
  36. URIVESC [Concomitant]
     Active Substance: TROSPIUM CHLORIDE
     Dates: start: 20170612
  37. HYDAL [Concomitant]
     Active Substance: HYDROMORPHONE HYDROCHLORIDE
  38. CIPROFLOXACIN. [Suspect]
     Active Substance: CIPROFLOXACIN
     Dates: start: 20170107
  39. CIPROXIN 500 MG [Suspect]
     Active Substance: CIPROFLOXACIN
     Indication: URETHRITIS
     Dosage: 500MG, 2X1 FOR TEN DAYS
     Route: 048
     Dates: start: 20170316
  40. CRESTON 20 MG [Concomitant]
     Dosage: 10 MILLIGRAM DAILY; 10 MG, 0-0-1-0
  41. KAMILLOSAN [Concomitant]
  42. MOVICOL PULVER [Concomitant]
  43. TRAMAL 50MG [Concomitant]
  44. URALYT [Concomitant]
     Active Substance: POTASSIUM CITRATE\TRISODIUM CITRATE DIHYDRATE
  45. CAL-O-VIT [Concomitant]
  46. EZETIMIB 10MG [Concomitant]
  47. VESICARE 5MG [Concomitant]
     Active Substance: SOLIFENACIN SUCCINATE
  48. FLUCONAZOL [Concomitant]
     Active Substance: FLUCONAZOLE
  49. FINASTERID [Concomitant]
     Active Substance: FINASTERIDE
  50. TARGIN [Concomitant]
     Active Substance: NALOXONE HYDROCHLORIDE\OXYCODONE HYDROCHLORIDE
  51. RENITEC PLUS 20MG [Concomitant]
  52. RHINOSPRAY [Concomitant]
     Active Substance: TRAMAZOLINE HYDROCHLORIDE
  53. LEXOTANIL [Concomitant]
     Active Substance: BROMAZEPAM
  54. FURADANTIN [Concomitant]
     Active Substance: NITROFURANTOIN
  55. PROSTA URGENIN [Concomitant]
     Active Substance: SERENOA REPENS WHOLE
  56. AGAFFIN [Concomitant]
  57. CIPROXIN 500 MG [Suspect]
     Active Substance: CIPROFLOXACIN
     Dosage: 1000 MILLIGRAM DAILY; 1-0-1 FOR 2 WEEKS
     Route: 048
     Dates: start: 20170825
  58. HYDAL 2MG [Concomitant]
  59. DULOXETIN KRKA 30MG [Concomitant]

REACTIONS (5)
  - Myalgia [Recovered/Resolved with Sequelae]
  - Enthesopathy [Not Recovered/Not Resolved]
  - Myopathy [Not Recovered/Not Resolved]
  - Adverse reaction [Recovered/Resolved with Sequelae]
  - Tendon pain [Recovered/Resolved with Sequelae]

NARRATIVE: CASE EVENT DATE: 2017
